FAERS Safety Report 25523286 (Version 3)
Quarter: 2025Q3

REPORT INFORMATION
  Report Type: Report from Study
  Country: CN (occurrence: CN)
  Receive Date: 20250707
  Receipt Date: 20250806
  Transmission Date: 20251021
  Serious: Yes (Hospitalization)
  Sender: ROCHE
  Company Number: CN-ROCHE-10000306086

PATIENT
  Age: 92 Year
  Sex: Male

DRUGS (2)
  1. ATEZOLIZUMAB [Suspect]
     Active Substance: ATEZOLIZUMAB
     Indication: Hepatic cancer
     Dosage: FORM STRENGTH: 1200MG/20ML
     Route: 042
     Dates: start: 20250120, end: 20250514
  2. BEVACIZUMAB [Suspect]
     Active Substance: BEVACIZUMAB
     Indication: Hepatic cancer
     Dosage: INJECTION, FORM STRENGTH: 100 MG/VIAL
     Route: 042
     Dates: start: 20250120, end: 20250514

REACTIONS (6)
  - Intestinal haemorrhage [Recovering/Resolving]
  - Hyperpyrexia [Unknown]
  - Chills [Unknown]
  - Haematochezia [Unknown]
  - Asthenia [Unknown]
  - Sopor [Unknown]

NARRATIVE: CASE EVENT DATE: 20250603
